FAERS Safety Report 13855654 (Version 1)
Quarter: 2017Q3

REPORT INFORMATION
  Report Type: Spontaneous
  Country: US (occurrence: US)
  Receive Date: 20170810
  Receipt Date: 20170810
  Transmission Date: 20171127
  Serious: No
  Sender: FDA-Public Use
  Company Number: US-VIFOR (INTERNATIONAL) INC.-VIT-2017-06469

PATIENT
  Sex: Female

DRUGS (21)
  1. METOPROLOL TARTRATE. [Concomitant]
     Active Substance: METOPROLOL TARTRATE
  2. ERGOCALCIFEROL. [Concomitant]
     Active Substance: ERGOCALCIFEROL
  3. MAGNESIUM [Concomitant]
     Active Substance: MAGNESIUM
  4. VELTASSA [Suspect]
     Active Substance: PATIROMER
     Indication: HYPERKALAEMIA
     Dates: start: 20161005
  5. CARDIZEM CD [Concomitant]
     Active Substance: DILTIAZEM HYDROCHLORIDE
  6. VYTORIN [Concomitant]
     Active Substance: EZETIMIBE\SIMVASTATIN
  7. CARDIZEM [Concomitant]
     Active Substance: DILTIAZEM HYDROCHLORIDE
  8. CLARITIN [Concomitant]
     Active Substance: LORATADINE
  9. PROTONIX [Concomitant]
     Active Substance: PANTOPRAZOLE SODIUM
  10. TRILIPIX [Concomitant]
     Active Substance: FENOFIBRIC ACID
  11. TRADJENTA [Concomitant]
     Active Substance: LINAGLIPTIN
  12. VITAMINS NOS [Concomitant]
     Active Substance: VITAMINS
  13. METAMUCIL [Concomitant]
     Active Substance: PLANTAGO SEED
  14. FLONASE [Concomitant]
     Active Substance: FLUTICASONE PROPIONATE
  15. WARFARIN SODIUM. [Concomitant]
     Active Substance: WARFARIN SODIUM
  16. ACETYLSALICYLIC ACID [Concomitant]
     Active Substance: ASPIRIN
  17. LANTUS SOLOSTAR [Concomitant]
     Active Substance: INSULIN GLARGINE
  18. VICODIN [Concomitant]
     Active Substance: ACETAMINOPHEN\HYDROCODONE BITARTRATE
  19. CALCIUM [Concomitant]
     Active Substance: CALCIUM
  20. TORASEMIDE [Concomitant]
     Active Substance: TORSEMIDE
  21. DIOVAN [Concomitant]
     Active Substance: VALSARTAN

REACTIONS (1)
  - Faeces hard [Not Recovered/Not Resolved]
